FAERS Safety Report 5340219-9 (Version None)
Quarter: 2007Q2

REPORT INFORMATION
  Report Type: 
  Country: None (occurrence: None)
  Receive Date: 20070405
  Receipt Date: 20061214
  Transmission Date: 20071010
  Serious: No
  Sender: FDA-Public Use
  Company Number: US200612001162

PATIENT
  Age: 50 Year
  Sex: Female

DRUGS (4)
  1. CYMBALTA [Suspect]
     Indication: DEPRESSION
     Dosage: SEE IMAGE
     Dates: start: 20050101
  2. XANAX [Concomitant]
  3. NEXIUM [Concomitant]
  4. TRAMADOLI HYDROCHLORIDUM (TRAMADOL HYDROCHLORIDE) [Concomitant]

REACTIONS (8)
  - CRYING [None]
  - DIARRHOEA [None]
  - FIBROMYALGIA [None]
  - HEAD INJURY [None]
  - IMPAIRED WORK ABILITY [None]
  - NAUSEA [None]
  - SUICIDAL IDEATION [None]
  - VERTIGO [None]
